FAERS Safety Report 18050312 (Version 1)
Quarter: 2020Q3

REPORT INFORMATION
  Report Type: Spontaneous
  Country: US (occurrence: US)
  Receive Date: 20200721
  Receipt Date: 20200721
  Transmission Date: 20201103
  Serious: Yes (Other)
  Sender: FDA-Public Use
  Company Number: US-ASTRAZENECA-2020SE88922

PATIENT
  Sex: Male

DRUGS (3)
  1. FARXIGA [Suspect]
     Active Substance: DAPAGLIFLOZIN PROPANEDIOL
     Indication: TYPE 2 DIABETES MELLITUS
     Route: 048
     Dates: start: 20200616
  2. LANTUS [Concomitant]
     Active Substance: INSULIN GLARGINE
     Dates: end: 20200616
  3. VICTOZA [Concomitant]
     Active Substance: LIRAGLUTIDE

REACTIONS (3)
  - Dizziness [Unknown]
  - Glycosylated haemoglobin increased [Not Recovered/Not Resolved]
  - Pollakiuria [Not Recovered/Not Resolved]
